FAERS Safety Report 11536652 (Version 1)
Quarter: 2015Q3

REPORT INFORMATION
  Report Type: Spontaneous
  Country: TR (occurrence: TR)
  Receive Date: 20150922
  Receipt Date: 20150922
  Transmission Date: 20151125
  Serious: Yes (Hospitalization)
  Sender: FDA-Public Use
  Company Number: TR-FRESENIUS KABI-FK201504472

PATIENT
  Age: 43 Year
  Sex: Male

DRUGS (5)
  1. GRANULOCYTE STIMULATING FACTOR [Concomitant]
  2. PACLITAXEL (MANUFACTURER UNKNOWN) [Suspect]
     Active Substance: PACLITAXEL
     Indication: GERM CELL CANCER
     Route: 065
  3. IFOSFAMIDE (MANUFACTURER UNKNOWN) [Suspect]
     Active Substance: IFOSFAMIDE
     Indication: GERM CELL CANCER
     Route: 065
  4. CISPLATIN. [Suspect]
     Active Substance: CISPLATIN
     Indication: GERM CELL CANCER
  5. MESNA. [Concomitant]
     Active Substance: MESNA
     Indication: GERM CELL CANCER

REACTIONS (1)
  - Thrombotic thrombocytopenic purpura [Recovered/Resolved]
